FAERS Safety Report 5951838-0 (Version None)
Quarter: 2008Q4

REPORT INFORMATION
  Report Type: 
  Country: None (occurrence: None)
  Receive Date: 20081113
  Receipt Date: 20081107
  Transmission Date: 20090506
  Serious: Yes (Other)
  Sender: FDA-Public Use
  Company Number: B0546024A

PATIENT
  Age: 70 Year
  Sex: Male

DRUGS (2)
  1. AVANDIA [Suspect]
     Route: 048
  2. FERROSANOL [Suspect]

REACTIONS (4)
  - ANAEMIA [None]
  - ANOSMIA [None]
  - DRUG INTERACTION [None]
  - HYPERSENSITIVITY [None]
